FAERS Safety Report 14227245 (Version 1)
Quarter: 2017Q4

REPORT INFORMATION
  Report Type: Spontaneous
  Country: US (occurrence: US)
  Receive Date: 20171127
  Receipt Date: 20171127
  Transmission Date: 20180321
  Serious: Yes (Life-Threatening, Hospitalization)
  Sender: FDA-Public Use
  Company Number: US-MYLANLABS-2017M1074088

PATIENT
  Age: 16 Month
  Sex: Male

DRUGS (1)
  1. CYTARABINE. [Suspect]
     Active Substance: CYTARABINE
     Indication: ACUTE MONOCYTIC LEUKAEMIA
     Dosage: 30 MG
     Route: 037

REACTIONS (4)
  - Tumour lysis syndrome [Recovering/Resolving]
  - Respiratory distress [Unknown]
  - Circulatory collapse [Unknown]
  - Respiratory acidosis [Unknown]
